FAERS Safety Report 6673690-0 (Version None)
Quarter: 2010Q1

REPORT INFORMATION
  Report Type: 
  Country: None (occurrence: None)
  Receive Date: 20100329
  Receipt Date: 20090722
  Transmission Date: 20100710
  Serious: Yes (Other)
  Sender: FDA-Public Use
  Company Number: 2009233538

PATIENT
  Age: 67 Year
  Sex: Male
  Weight: 118.8 kg

DRUGS (12)
  1. GEODON [Suspect]
     Indication: BIPOLAR I DISORDER
     Dosage: 60 MG, 2X/DAY, ORAL
     Route: 048
     Dates: start: 20090326, end: 20090507
  2. ARICEPT [Concomitant]
  3. NAMENDA [Concomitant]
  4. COZAAR [Concomitant]
  5. DARVOCET [Concomitant]
  6. GLUCOPHAGE [Concomitant]
  7. LOPID [Concomitant]
  8. NAPROSYN [Concomitant]
  9. NIACIN [Concomitant]
  10. ROBAXIN [Concomitant]
  11. VITAMIN E [Concomitant]
  12. ASPIRIN [Concomitant]

REACTIONS (3)
  - BRUXISM [None]
  - CHILLS [None]
  - MANIA [None]
